FAERS Safety Report 4326707-2 (Version None)
Quarter: 2004Q1

REPORT INFORMATION
  Report Type: 
  Country: None (occurrence: None)
  Receive Date: 20040330
  Receipt Date: 20040308
  Transmission Date: 20041129
  Serious: Yes (Hospitalization, Other)
  Sender: FDA-Public Use
  Company Number: AU-BRISTOL-MYERS SQUIBB COMPANY-12533584

PATIENT
  Age: 68 Year
  Sex: Male

DRUGS (7)
  1. EFAVIRENZ CAPS [Suspect]
     Route: 048
     Dates: start: 20001113
  2. DIDANOSINE [Suspect]
     Dosage: RANDOMIZED ON 13-NOV-2000
     Dates: start: 20001113, end: 20021017
  3. STAVUDINE [Suspect]
     Dates: start: 20001113, end: 20021017
  4. NELFINAVIR MESYLATE [Suspect]
     Dates: start: 20001113, end: 20021017
  5. LAMIVUDINE [Suspect]
     Dates: start: 20021017
  6. ZIDOVUDINE [Suspect]
     Dates: start: 20021017
  7. ABACAVIR SULFATE [Suspect]
     Dates: start: 20021017

REACTIONS (6)
  - ALANINE AMINOTRANSFERASE INCREASED [None]
  - ASPARTATE AMINOTRANSFERASE INCREASED [None]
  - ERYTHEMA [None]
  - HYPERCHOLESTEROLAEMIA [None]
  - PNEUMONIA LEGIONELLA [None]
  - WEIGHT DECREASED [None]
